FAERS Safety Report 5432048-2 (Version None)
Quarter: 2007Q3

REPORT INFORMATION
  Report Type: 
  Country: None (occurrence: None)
  Receive Date: 20070830
  Receipt Date: 20070813
  Transmission Date: 20080115
  Serious: No
  Sender: FDA-Public Use
  Company Number: US-BOEHRINGER INGELHEIM PHARMACEUTICALS, INC.-2007-BP-19017BP

PATIENT
  Sex: Female

DRUGS (6)
  1. SPIRIVA [Suspect]
     Indication: CHRONIC OBSTRUCTIVE PULMONARY DISEASE
     Route: 055
     Dates: start: 20070730
  2. SPIRIVA [Suspect]
     Indication: BRONCHITIS CHRONIC
  3. ENBREL [Concomitant]
     Indication: ARTHRITIS
  4. VICODIN [Concomitant]
     Indication: PAIN
  5. XANAX [Concomitant]
     Indication: ANXIETY
  6. ENABLEX [Concomitant]
     Indication: INCONTINENCE

REACTIONS (1)
  - INCONTINENCE [None]
